FAERS Safety Report 12642839 (Version 11)
Quarter: 2018Q1

REPORT INFORMATION
  Report Type: Spontaneous
  Country: US (occurrence: US)
  Receive Date: 20160811
  Receipt Date: 20180220
  Transmission Date: 20180508
  Serious: Yes (Congenital Anomaly, Other)
  Sender: FDA-Public Use
  Company Number: PHHY2015US126470

PATIENT
  Sex: Female

DRUGS (2)
  1. ZOFRAN [Suspect]
     Active Substance: ONDANSETRON HYDROCHLORIDE
     Indication: FOETAL EXPOSURE DURING PREGNANCY
     Dosage: MOTHER^S DOSE: 8 MG, TID
     Route: 064
  2. ZOFRAN [Suspect]
     Active Substance: ONDANSETRON HYDROCHLORIDE
     Indication: FOETAL EXPOSURE DURING PREGNANCY
     Dosage: MOTHER^S DOSE: 4 MG, TID AND 8 MG, TID
     Route: 064

REACTIONS (40)
  - Meniscus injury [Unknown]
  - Upper respiratory tract infection [Unknown]
  - Breast mass [Unknown]
  - Ear infection [Unknown]
  - Decreased appetite [Unknown]
  - Dysphagia [Unknown]
  - Chest discomfort [Unknown]
  - Diarrhoea [Unknown]
  - Ligament rupture [Unknown]
  - Cerumen impaction [Unknown]
  - Tonsillar hypertrophy [Unknown]
  - Fatigue [Unknown]
  - Congenital anomaly [Unknown]
  - Foetal exposure during pregnancy [Unknown]
  - Otitis media [Unknown]
  - Pyrexia [Unknown]
  - Anxiety [Unknown]
  - Acute stress disorder [Unknown]
  - Cough [Unknown]
  - Abdominal pain upper [Unknown]
  - Gingivitis [Unknown]
  - Otorrhoea [Unknown]
  - Dyspnoea [Unknown]
  - Cleft lip and palate [Unknown]
  - Nose deformity [Unknown]
  - Ear disorder [Unknown]
  - Tonsillitis [Unknown]
  - Oropharyngeal pain [Unknown]
  - Arthralgia [Unknown]
  - Snoring [Unknown]
  - Lymphadenopathy [Unknown]
  - Congenital eye disorder [Unknown]
  - Deafness [Unknown]
  - Eustachian tube dysfunction [Unknown]
  - Acne [Unknown]
  - Abdominal pain [Unknown]
  - Headache [Unknown]
  - Dysmorphism [Unknown]
  - Neck deformity [Unknown]
  - Pain [Unknown]
